FAERS Safety Report 5921272-8 (Version None)
Quarter: 2008Q4

REPORT INFORMATION
  Report Type: 
  Country: None (occurrence: None)
  Receive Date: 20081014
  Receipt Date: 20080930
  Transmission Date: 20090506
  Serious: Yes (Hospitalization)
  Sender: FDA-Public Use
  Company Number: 2008-03219

PATIENT
  Age: 63 Year
  Sex: Male
  Weight: 83 kg

DRUGS (4)
  1. VELCADE [Suspect]
     Indication: MULTIPLE MYELOMA
     Dosage: 2.5 MG, INTRAVENOUS
     Route: 042
     Dates: start: 20070518, end: 20080827
  2. LEVOTHYROXINE SODIUM [Concomitant]
  3. PANTOPRAZOLE SODIUM [Concomitant]
  4. TAMSULOSIN HCL [Concomitant]

REACTIONS (3)
  - CARDIAC FAILURE [None]
  - CHEST PAIN [None]
  - PULMONARY EMBOLISM [None]
